FAERS Safety Report 12429486 (Version 3)
Quarter: 2016Q3

REPORT INFORMATION
  Report Type: Report from Study
  Country: US (occurrence: US)
  Receive Date: 20160602
  Receipt Date: 20160802
  Transmission Date: 20161109
  Serious: Yes (Hospitalization, Disabling)
  Sender: FDA-Public Use
  Company Number: US-VALIDUS PHARMACEUTICALS LLC-US-2016VAL001710

PATIENT

DRUGS (30)
  1. BUMETANIDE. [Concomitant]
     Active Substance: BUMETANIDE
     Indication: PULMONARY HYPERTENSION
  2. LETAIRIS [Concomitant]
     Active Substance: AMBRISENTAN
     Indication: HYPERTENSION
     Dosage: 10 MG, TOTAL
     Route: 048
     Dates: start: 20090106
  3. LETAIRIS [Concomitant]
     Active Substance: AMBRISENTAN
     Indication: PULMONARY ARTERIAL HYPERTENSION
  4. PAROXETINE. [Concomitant]
     Active Substance: PAROXETINE
     Indication: OBSESSIVE-COMPULSIVE DISORDER
     Dosage: 10 MG, DAILY
     Route: 048
     Dates: start: 20131230
  5. INDOMETHACIN                       /00003801/ [Concomitant]
     Active Substance: INDOMETHACIN
     Indication: GOUT
     Dosage: UNK, PRN
     Route: 048
     Dates: start: 20131230
  6. LORTAB [Concomitant]
     Active Substance: ACETAMINOPHEN\HYDROCODONE BITARTRATE
     Indication: PAIN
     Dosage: 7.5-325 MG Q4H
     Route: 048
     Dates: start: 20150305
  7. FENTANIL [Concomitant]
     Active Substance: FENTANYL
     Indication: OSTEOARTHRITIS
     Dosage: 30 ?G, UNK
     Dates: start: 2013
  8. LASIX [Suspect]
     Active Substance: FUROSEMIDE
     Indication: OEDEMA
     Dosage: 40 MG, DAILY
     Route: 048
     Dates: start: 20090106
  9. TYVASO [Suspect]
     Active Substance: TREPROSTINIL
     Dosage: 54 ?G, INHALATIONAL;4 TIMES A DAY
  10. RITALIN [Concomitant]
     Active Substance: METHYLPHENIDATE HYDROCHLORIDE
     Indication: DEPRESSION
     Dosage: 40 MG, DAILY
     Route: 048
     Dates: start: 20131230
  11. REVATIO [Concomitant]
     Active Substance: SILDENAFIL CITRATE
     Indication: HYPERTENSION
     Dosage: 2400 MG, UNK
     Route: 048
     Dates: start: 20090106
  12. PROTONIX [Concomitant]
     Active Substance: PANTOPRAZOLE SODIUM
     Indication: PROPHYLAXIS
     Dosage: UNK
  13. BUMETANIDE. [Concomitant]
     Active Substance: BUMETANIDE
     Indication: HYPERTENSION
     Dosage: 1 MG, DAILY
     Route: 048
     Dates: start: 20131230
  14. ADDERALL [Concomitant]
     Active Substance: AMPHETAMINE ASPARTATE\AMPHETAMINE SULFATE\DEXTROAMPHETAMINE SACCHARATE\DEXTROAMPHETAMINE SULFATE
     Indication: PRODUCT USED FOR UNKNOWN INDICATION
     Dosage: UNK
  15. COUMADIN [Concomitant]
     Active Substance: WARFARIN SODIUM
     Indication: PULMONARY ARTERIAL HYPERTENSION
     Dosage: 5 MG, DAILY
     Route: 048
     Dates: start: 20131230
  16. MELOXICAM. [Concomitant]
     Active Substance: MELOXICAM
     Indication: OSTEOARTHRITIS
     Dosage: 15 MG, DAILY
     Route: 048
     Dates: start: 20131230
  17. DURAGESIC [Concomitant]
     Active Substance: FENTANYL
     Indication: BACK PAIN
  18. AMPHETAMIN SALTS [Concomitant]
     Active Substance: AMPHETAMINE ASPARTATE\AMPHETAMINE SULFATE\DEXTROAMPHETAMINE SACCHARATE\DEXTROAMPHETAMINE SULFATE
     Indication: PRODUCT USED FOR UNKNOWN INDICATION
     Dosage: 30 MG, TID
     Route: 048
     Dates: start: 20150305
  19. TYVASO [Suspect]
     Active Substance: TREPROSTINIL
     Indication: PULMONARY ARTERIAL HYPERTENSION
     Dosage: 216 ?G, INHALATIONAL;DAILY
     Dates: start: 20140610, end: 20150509
  20. VICODIN ES [Concomitant]
     Active Substance: ACETAMINOPHEN\HYDROCODONE BITARTRATE
     Indication: OSTEOARTHRITIS
     Dosage: 1500 MG-15 MG, DAILY
     Route: 048
     Dates: start: 20090106
  21. ESTAZOLAM. [Concomitant]
     Active Substance: ESTAZOLAM
     Indication: DEPRESSION
     Dosage: 2 MG, TID
     Route: 048
     Dates: start: 20150305
  22. IRON [Concomitant]
     Active Substance: IRON
     Indication: SUPPLEMENTATION THERAPY
     Dosage: 325 MG, DAILY
     Route: 048
     Dates: start: 20150305
  23. TYVASO [Suspect]
     Active Substance: TREPROSTINIL
     Dosage: 216 ?G, 4 TIMES A DAY
     Route: 055
     Dates: start: 20141015
  24. PAXIL [Concomitant]
     Active Substance: PAROXETINE HYDROCHLORIDE
     Indication: HYPERTENSION
     Dosage: 20 MG, DAILY
     Route: 048
     Dates: start: 20131230
  25. SYMBICORT [Concomitant]
     Active Substance: BUDESONIDE\FORMOTEROL FUMARATE DIHYDRATE
     Indication: PULMONARY ARTERIAL HYPERTENSION
     Dosage: 80 MG, UNK
     Route: 055
     Dates: start: 20131230
  26. DILAUDID [Concomitant]
     Active Substance: HYDROMORPHONE HYDROCHLORIDE
     Indication: PRODUCT USED FOR UNKNOWN INDICATION
     Dosage: 2-4 MG, ONCE EVERY FOUR HOURS AS NEEDED
     Route: 048
     Dates: start: 20150403
  27. ITRACONAZOLE. [Concomitant]
     Active Substance: ITRACONAZOLE
     Indication: DIURETIC THERAPY
     Dosage: 100 MG, BID
     Route: 048
     Dates: start: 20150305
  28. ALLOPURINOL. [Concomitant]
     Active Substance: ALLOPURINOL
     Indication: GOUT
     Dosage: 300 MG, DAILY
     Route: 048
     Dates: start: 20131230
  29. REVATIO [Concomitant]
     Active Substance: SILDENAFIL CITRATE
     Indication: PULMONARY HYPERTENSION
     Dosage: 80 MG, TID
     Route: 048
     Dates: start: 20150319
  30. DURAGESIC [Concomitant]
     Active Substance: FENTANYL
     Indication: OSTEOARTHRITIS
     Dosage: 33 ?G, DAILY
     Route: 062
     Dates: start: 20150305

REACTIONS (5)
  - Oedema peripheral [Not Recovered/Not Resolved]
  - Deep vein thrombosis [Not Recovered/Not Resolved]
  - Sepsis [Not Recovered/Not Resolved]
  - Hypomagnesaemia [Not Recovered/Not Resolved]
  - Hypokalaemia [Not Recovered/Not Resolved]

NARRATIVE: CASE EVENT DATE: 20150403
